FAERS Safety Report 23184554 (Version 1)
Quarter: 2023Q4

REPORT INFORMATION
  Report Type: Spontaneous
  Country: US (occurrence: US)
  Receive Date: 20231115
  Receipt Date: 20231115
  Transmission Date: 20240110
  Serious: No
  Sender: FDA-Public Use
  Company Number: US-009507513-2311USA003782

PATIENT
  Age: 47 Year
  Sex: Female

DRUGS (6)
  1. MOLNUPIRAVIR [Suspect]
     Active Substance: MOLNUPIRAVIR
     Indication: COVID-19 treatment
     Dosage: 200 MG EVERY 12 HOURS FOR 5 DAYS
     Route: 048
     Dates: start: 20231107
  2. LEVOTHYROXINE [Concomitant]
     Active Substance: LEVOTHYROXINE
  3. VITAMIN D2 [Concomitant]
     Active Substance: ERGOCALCIFEROL
  4. IBUPROFEN [Concomitant]
     Active Substance: IBUPROFEN
  5. PREDNISONE [Concomitant]
     Active Substance: PREDNISONE
  6. AMITRIPTYLINE [Concomitant]
     Active Substance: AMITRIPTYLINE

REACTIONS (3)
  - Goitre [Not Recovered/Not Resolved]
  - Speech disorder [Not Recovered/Not Resolved]
  - Incorrect dose administered [Unknown]

NARRATIVE: CASE EVENT DATE: 20231107
